FAERS Safety Report 9236577 (Version 9)
Quarter: 2013Q3

REPORT INFORMATION
  Report Type: Report from Study
  Country: HK (occurrence: HK)
  Receive Date: 20130417
  Receipt Date: 20130927
  Transmission Date: 20140515
  Serious: Yes (Hospitalization)
  Sender: FDA-Public Use
  Company Number: HK-009507513-1304HKG005678

PATIENT
  Age: 22 Year
  Sex: Male
  Weight: 78.4 kg

DRUGS (13)
  1. BOCEPREVIR [Suspect]
     Indication: CHRONIC HEPATITIS C
     Dosage: 4 DF, TID
     Route: 048
     Dates: start: 20130327, end: 20130406
  2. BOCEPREVIR [Suspect]
     Dosage: 4 DF, QAM
     Route: 048
     Dates: start: 20130407, end: 20130407
  3. BOCEPREVIR [Suspect]
     Dosage: 4 DF, AFTERNOON AND EVENING
     Route: 048
     Dates: start: 20130408, end: 20130408
  4. BOCEPREVIR [Suspect]
     Dosage: 4 DF,TID
     Route: 048
     Dates: start: 20130409
  5. RIBAVIRIN [Suspect]
     Indication: CHRONIC HEPATITIS C
     Dosage: 3 DF, QPM
     Route: 048
     Dates: start: 20130227, end: 20130227
  6. RIBAVIRIN [Suspect]
     Dosage: 3 DF,AM AND PM
     Route: 048
     Dates: start: 20130228, end: 20130406
  7. RIBAVIRIN [Suspect]
     Dosage: 3 DF, QAM
     Route: 048
     Dates: start: 20130407, end: 20130407
  8. RIBAVIRIN [Suspect]
     Dosage: 3 DF, QPM
     Route: 048
     Dates: start: 20130408, end: 20130408
  9. RIBAVIRIN [Suspect]
     Dosage: 3 DF, AM AND PM
     Route: 048
     Dates: start: 20130409, end: 20130423
  10. RIBAVIRIN [Suspect]
     Dosage: 2 DF,AM
     Route: 048
     Dates: start: 20130424
  11. RIBAVIRIN [Suspect]
     Dosage: 3 DF,PM
     Route: 048
     Dates: start: 20130424
  12. PEGINTERFERON ALFA-2A [Suspect]
     Indication: CHRONIC HEPATITIS C
     Dosage: 180 MICROGRAM, QW
     Route: 058
     Dates: start: 20130227
  13. IMOVANE [Concomitant]
     Indication: INSOMNIA
     Dosage: TOTAL DAILY DOSE 7.5 MG
     Route: 048
     Dates: start: 20130327, end: 20130423

REACTIONS (1)
  - Abdominal pain upper [Recovered/Resolved]
